FAERS Safety Report 18856541 (Version 1)
Quarter: 2021Q1

REPORT INFORMATION
  Report Type: Spontaneous
  Country: BR (occurrence: BR)
  Receive Date: 20210207
  Receipt Date: 20210207
  Transmission Date: 20210420
  Serious: Yes (Other)
  Sender: FDA-Public Use
  Company Number: BR-CELLTRION INC.-2020BR021362

PATIENT

DRUGS (2)
  1. DIAZEPAM. [Concomitant]
     Active Substance: DIAZEPAM
     Dosage: UNK
  2. REMSIMA [Suspect]
     Active Substance: INFLIXIMAB
     Indication: PSORIASIS
     Dosage: 400 MG, EVERY 8 WEEKS
     Route: 065
     Dates: start: 2007

REACTIONS (11)
  - Hypersensitivity [Not Recovered/Not Resolved]
  - Thinking abnormal [Recovered/Resolved]
  - Sneezing [Not Recovered/Not Resolved]
  - Feeling hot [Recovered/Resolved]
  - Rhinitis allergic [Unknown]
  - Blood triglycerides increased [Recovering/Resolving]
  - Influenza [Not Recovered/Not Resolved]
  - Decreased immune responsiveness [Unknown]
  - Andropause [Recovering/Resolving]
  - Blood cholesterol increased [Recovering/Resolving]
  - Underdose [Unknown]

NARRATIVE: CASE EVENT DATE: 2007
